FAERS Safety Report 5682589-8 (Version None)
Quarter: 2008Q1

REPORT INFORMATION
  Report Type: 
  Country: None (occurrence: None)
  Receive Date: 20080327
  Receipt Date: 20071227
  Transmission Date: 20080703
  Serious: No
  Sender: FDA-Public Use
  Company Number: US-BRISTOL-MYERS SQUIBB COMPANY-14025670

PATIENT
  Age: 54 Year
  Sex: Female
  Weight: 62 kg

DRUGS (4)
  1. ORENCIA [Suspect]
     Indication: RHEUMATOID ARTHRITIS
     Dosage: SECOND INFUSION ON 26-DEC-2007
     Route: 042
     Dates: start: 20071212
  2. MEDROL [Concomitant]
  3. PLAQUENIL [Concomitant]
  4. CELEBREX [Concomitant]

REACTIONS (7)
  - ABDOMINAL DISTENSION [None]
  - ABDOMINAL PAIN UPPER [None]
  - ASTHENIA [None]
  - COUGH [None]
  - DIZZINESS [None]
  - DRY THROAT [None]
  - RHEUMATOID ARTHRITIS [None]
